FAERS Safety Report 22601577 (Version 1)
Quarter: 2023Q2

REPORT INFORMATION
  Report Type: Spontaneous
  Country: US (occurrence: None)
  Receive Date: 20230613
  Receipt Date: 20230613
  Transmission Date: 20230721
  Serious: Yes (Death)
  Sender: FDA-Public Use
  Company Number: None

PATIENT
  Age: 69 Year
  Sex: Female

DRUGS (9)
  1. REPATHA [Suspect]
     Active Substance: EVOLOCUMAB
     Indication: Product used for unknown indication
     Dosage: 140MG/ML 2 WEEKS SUBCUTANEOUS
     Route: 058
     Dates: start: 20220816
  2. ALPRAZOLAM [Concomitant]
     Active Substance: ALPRAZOLAM
  3. CELEXA [Concomitant]
     Active Substance: CITALOPRAM HYDROBROMIDE
  4. IBUPROFEN [Concomitant]
     Active Substance: IBUPROFEN
  5. LEVOTHYROXINE [Concomitant]
     Active Substance: LEVOTHYROXINE
  6. MULTIVITAMIN ADULTS [Concomitant]
  7. SUMATRIPTAN [Concomitant]
     Active Substance: SUMATRIPTAN
  8. TOPAMAX [Concomitant]
     Active Substance: TOPIRAMATE
  9. ZETIA [Concomitant]
     Active Substance: EZETIMIBE

REACTIONS (1)
  - Death [None]
